FAERS Safety Report 8326484-4 (Version None)
Quarter: 2012Q2

REPORT INFORMATION
  Report Type: 
  Country: None (occurrence: None)
  Receive Date: 20120501
  Receipt Date: 20120424
  Transmission Date: 20120825
  Serious: Yes (Hospitalization, Other)
  Sender: FDA-Public Use
  Company Number: US-PFIZER INC-2012100999

PATIENT
  Sex: Male
  Weight: 58.957 kg

DRUGS (2)
  1. VIAGRA [Suspect]
     Indication: ERECTILE DYSFUNCTION
     Dosage: 50 MG, UNK
     Route: 048
     Dates: start: 20110818, end: 20110819
  2. LANTUS [Concomitant]
     Indication: DIABETES MELLITUS
     Dosage: 20 IU, DAILY

REACTIONS (5)
  - IMPAIRED DRIVING ABILITY [None]
  - BLINDNESS [None]
  - CEREBROVASCULAR ACCIDENT [None]
  - BLINDNESS TRANSIENT [None]
  - OPTIC ISCHAEMIC NEUROPATHY [None]
